FAERS Safety Report 8336043-5 (Version None)
Quarter: 2012Q2

REPORT INFORMATION
  Report Type: 
  Country: None (occurrence: None)
  Receive Date: 20120501
  Receipt Date: 20120501
  Transmission Date: 20120825
  Serious: Yes (Hospitalization)
  Sender: FDA-Public Use
  Company Number: None

PATIENT
  Age: 85 Year
  Sex: Male
  Weight: 77.2 kg

DRUGS (11)
  1. KEPPRA [Suspect]
     Indication: CONVULSION
     Dosage: 280MG X 3 DAY QHS PO RECENT
     Route: 048
  2. SIMVASTATIN [Concomitant]
  3. ETODOLAC [Concomitant]
  4. ALTACE [Concomitant]
  5. PREDNISONE [Suspect]
     Indication: PNEUMONIA
     Dosage: RECENT
  6. ULTRAM [Concomitant]
  7. DONEPEZIL HCL [Concomitant]
  8. ULORIC [Concomitant]
  9. RISPERDAL [Concomitant]
  10. LEVAQUIN [Suspect]
     Indication: PNEUMONIA
     Dosage: RECENT
  11. NAMENDA [Concomitant]

REACTIONS (4)
  - ACUTE SINUSITIS [None]
  - DEMENTIA [None]
  - CONDITION AGGRAVATED [None]
  - ENCEPHALOPATHY [None]
